FAERS Safety Report 13407267 (Version 2)
Quarter: 2017Q2

REPORT INFORMATION
  Report Type: Report from Study
  Country: None (occurrence: NL)
  Receive Date: 20170405
  Receipt Date: 20170421
  Transmission Date: 20170830
  Serious: Yes (Death)
  Sender: FDA-Public Use
  Company Number: NL-ABBVIE-17P-114-1932350-00

PATIENT
  Age: 45 Year
  Sex: Male

DRUGS (1)
  1. DUODOPA [Suspect]
     Active Substance: CARBIDOPA\LEVODOPA
     Indication: PRODUCT USED FOR UNKNOWN INDICATION
     Dosage: MORNING DOSE: 4.0?? CONTINUOUS DOSE:? UNK ??   EXTRA DOSE: UNK
     Route: 050
     Dates: start: 20111020

REACTIONS (1)
  - Death [Fatal]

NARRATIVE: CASE EVENT DATE: 20170330
